FAERS Safety Report 13052095 (Version 2)
Quarter: 2017Q1

REPORT INFORMATION
  Report Type: Spontaneous
  Country: AT (occurrence: AT)
  Receive Date: 20161221
  Receipt Date: 20170106
  Transmission Date: 20170428
  Serious: Yes (Other)
  Sender: FDA-Public Use
  Company Number: AT-PFIZER INC-2016585580

PATIENT
  Age: 29 Year
  Sex: Female

DRUGS (2)
  1. FOLINIC ACID [Concomitant]
     Active Substance: LEUCOVORIN
     Dosage: UNK
     Route: 030
  2. METHOTREXATE SODIUM. [Suspect]
     Active Substance: METHOTREXATE SODIUM
     Indication: PLACENTA ACCRETA
     Dosage: 1 MG/KG, WEEKLY (1 WEEK AFTER CESAREAN SECTION) (TOTAL 6 DOSES)
     Route: 030

REACTIONS (4)
  - Endometritis [Unknown]
  - Vaginal haemorrhage [Unknown]
  - Febrile infection [Unknown]
  - Product use issue [Unknown]
